FAERS Safety Report 13721446 (Version 3)
Quarter: 2017Q3

REPORT INFORMATION
  Report Type: Spontaneous
  Country: GE (occurrence: GE)
  Receive Date: 20170706
  Receipt Date: 20170727
  Transmission Date: 20171127
  Serious: Yes (Other)
  Sender: FDA-Public Use
  Company Number: GE-JNJFOC-20170701718

PATIENT
  Age: 40 Year
  Sex: Male
  Weight: 58 kg

DRUGS (12)
  1. AMOXICILLIN/CLAVULANIC ACID [Suspect]
     Active Substance: AMOXICILLIN\CLAVULANIC ACID
     Indication: TUBERCULOSIS
     Route: 065
     Dates: start: 20160815, end: 20161024
  2. AMOXICILLIN/CLAVULANIC ACID [Suspect]
     Active Substance: AMOXICILLIN\CLAVULANIC ACID
     Indication: TUBERCULOSIS
     Route: 065
     Dates: start: 20160705, end: 20160805
  3. IMIPENEM [Suspect]
     Active Substance: IMIPENEM
     Indication: TUBERCULOSIS
     Route: 042
     Dates: start: 20150705, end: 20160805
  4. PARA-AMINOSALICYLIC ACID [Suspect]
     Active Substance: AMINOSALICYLIC ACID
     Indication: TUBERCULOSIS
     Route: 065
     Dates: start: 20160620, end: 20160805
  5. CYCLOSERINE. [Suspect]
     Active Substance: CYCLOSERINE
     Indication: TUBERCULOSIS
     Route: 065
     Dates: start: 20160808
  6. LINEZOLIDE [Suspect]
     Active Substance: LINEZOLID
     Indication: TUBERCULOSIS
     Route: 065
     Dates: start: 20160705, end: 20160805
  7. LINEZOLIDE [Suspect]
     Active Substance: LINEZOLID
     Indication: TUBERCULOSIS
     Route: 065
     Dates: start: 20160808
  8. IMIPENEM [Suspect]
     Active Substance: IMIPENEM
     Indication: TUBERCULOSIS
     Route: 042
     Dates: start: 20160815, end: 20161024
  9. BEDAQUILINE [Suspect]
     Active Substance: BEDAQUILINE
     Indication: TUBERCULOSIS
     Route: 048
     Dates: start: 2016, end: 20160805
  10. CYCLOSERINE. [Suspect]
     Active Substance: CYCLOSERINE
     Indication: TUBERCULOSIS
     Route: 065
     Dates: start: 20160620, end: 20160805
  11. BEDAQUILINE [Suspect]
     Active Substance: BEDAQUILINE
     Indication: TUBERCULOSIS
     Route: 048
     Dates: start: 20160705, end: 2016
  12. BEDAQUILINE [Suspect]
     Active Substance: BEDAQUILINE
     Indication: TUBERCULOSIS
     Route: 048
     Dates: start: 20160808

REACTIONS (2)
  - Nausea [Recovered/Resolved]
  - Vomiting [Recovered/Resolved]

NARRATIVE: CASE EVENT DATE: 20160801
